FAERS Safety Report 25330223 (Version 3)
Quarter: 2025Q2

REPORT INFORMATION
  Report Type: Spontaneous
  Country: FR (occurrence: FR)
  Receive Date: 20250519
  Receipt Date: 20250625
  Transmission Date: 20250717
  Serious: Yes (Other)
  Sender: AMGEN
  Company Number: None

PATIENT
  Age: 74 Year
  Sex: Male
  Weight: 83 kg

DRUGS (1)
  1. REPATHA [Suspect]
     Active Substance: EVOLOCUMAB
     Indication: Dyslipidaemia
     Route: 058
     Dates: start: 20241101, end: 20250430

REACTIONS (2)
  - Herpes zoster [Recovering/Resolving]
  - Herpes zoster meningoencephalitis [Recovering/Resolving]

NARRATIVE: CASE EVENT DATE: 20250423
